FAERS Safety Report 5848872-8 (Version None)
Quarter: 2008Q3

REPORT INFORMATION
  Report Type: 
  Country: None (occurrence: None)
  Receive Date: 20080818
  Receipt Date: 20080806
  Transmission Date: 20090109
  Serious: Yes (Hospitalization, Other)
  Sender: FDA-Public Use
  Company Number: CO-PFIZER INC-2008065641

PATIENT
  Sex: Female

DRUGS (3)
  1. CHANTIX [Suspect]
     Indication: SMOKING CESSATION THERAPY
     Dosage: DAILY DOSE:2MG
     Route: 048
  2. WARFARIN SODIUM [Suspect]
  3. TRAZODONE HCL [Concomitant]

REACTIONS (3)
  - ARRHYTHMIA [None]
  - HALLUCINATION [None]
  - PHOTOPSIA [None]
